FAERS Safety Report 6160998-0 (Version None)
Quarter: 2009Q2

REPORT INFORMATION
  Report Type: 
  Country: None (occurrence: None)
  Receive Date: 20090420
  Receipt Date: 20090408
  Transmission Date: 20091009
  Serious: Yes (Hospitalization)
  Sender: FDA-Public Use
  Company Number: US-PFIZER INC-2006041189

PATIENT
  Sex: Male

DRUGS (2)
  1. BLINDED *PLACEBO [Suspect]
     Indication: HIV INFECTION
     Dosage: UNK
     Route: 048
     Dates: start: 20051107, end: 20051211
  2. BLINDED MARAVIROC [Suspect]
     Indication: HIV INFECTION
     Dosage: UNK
     Route: 048
     Dates: start: 20051107, end: 20051211

REACTIONS (3)
  - DEHYDRATION [None]
  - DIARRHOEA [None]
  - OESOPHAGEAL CANDIDIASIS [None]
